FAERS Safety Report 17242078 (Version 4)
Quarter: 2020Q2

REPORT INFORMATION
  Report Type: Spontaneous
  Country: US (occurrence: US)
  Receive Date: 20200107
  Receipt Date: 20200506
  Transmission Date: 20200713
  Serious: Yes (Hospitalization)
  Sender: FDA-Public Use
  Company Number: US-AMNEAL PHARMACEUTICALS-2019-AMRX-02752

PATIENT
  Sex: Male

DRUGS (3)
  1. RYTARY [Suspect]
     Active Substance: CARBIDOPA\LEVODOPA
     Indication: PARKINSON^S DISEASE
     Dosage: 1 CAPSULES, 3X/DAY
     Route: 065
     Dates: start: 201712
  2. GABAPENTIN. [Suspect]
     Active Substance: GABAPENTIN
     Indication: PRODUCT USED FOR UNKNOWN INDICATION
     Dosage: UNK
     Route: 065
  3. RYTARY [Suspect]
     Active Substance: CARBIDOPA\LEVODOPA
     Dosage: UNK, 3-4, EVERY 8 HOURS
     Route: 048

REACTIONS (12)
  - Asthma [Unknown]
  - Feeling of despair [Unknown]
  - Tremor [Unknown]
  - Fatigue [Unknown]
  - Muscle spasms [Unknown]
  - Muscle injury [Unknown]
  - Product dose omission [Unknown]
  - Therapy cessation [Unknown]
  - Bronchitis [Unknown]
  - Hallucination [Unknown]
  - Temperature intolerance [Unknown]
  - Therapeutic product effect incomplete [Unknown]
